FAERS Safety Report 4911540-0 (Version None)
Quarter: 2006Q1

REPORT INFORMATION
  Report Type: 
  Country: None (occurrence: None)
  Receive Date: 20060213
  Receipt Date: 20060213
  Transmission Date: 20060701
  Serious: No
  Sender: FDA-Public Use
  Company Number: C06-012

PATIENT
  Age: 65 Year
  Sex: Male
  Weight: 88.4514 kg

DRUGS (3)
  1. QUINAPRIL TABLETS, 20 MG [Suspect]
     Indication: BLOOD PRESSURE INCREASED
     Dosage: 2 TABLETS A DAY
  2. ZOCOR [Concomitant]
  3. HYDROCHLOROTYZADE [Concomitant]

REACTIONS (3)
  - BLOOD PRESSURE DECREASED [None]
  - MALAISE [None]
  - REACTION TO COLOURING [None]
